FAERS Safety Report 19807168 (Version 1)
Quarter: 2021Q3

REPORT INFORMATION
  Report Type: Spontaneous
  Country: US (occurrence: US)
  Receive Date: 20210908
  Receipt Date: 20210908
  Transmission Date: 20211014
  Serious: Yes (Life-Threatening)
  Sender: FDA-Public Use
  Company Number: None

PATIENT
  Age: 35 Year
  Sex: Male
  Weight: 124.8 kg

DRUGS (7)
  1. BARICITINIB. [Suspect]
     Active Substance: BARICITINIB
     Indication: COVID-19
     Route: 048
     Dates: start: 20210828, end: 20210908
  2. DEXAMETHASONE 6 MG PO DAILY [Concomitant]
     Dates: start: 20210906
  3. ENOXAPARIN 40 MG SQ TWICE DAILY [Concomitant]
     Dates: start: 20210828, end: 20210907
  4. DEXAMETHASONE IV  DAILY [Concomitant]
     Dates: start: 20210827, end: 20210828
  5. PANTOPRAZOLE 40 MG PO EVERY MORNING [Concomitant]
     Dates: start: 20210905
  6. REMDESIVIR IV DAILY [Concomitant]
     Dates: start: 20210827, end: 20210831
  7. VENLAFAXINE 75 MG PO DAILY [Concomitant]
     Dates: start: 20210827

REACTIONS (3)
  - Pulmonary embolism [None]
  - Myocardial strain [None]
  - Deep vein thrombosis [None]

NARRATIVE: CASE EVENT DATE: 20210907
